FAERS Safety Report 5263916-2 (Version None)
Quarter: 2007Q1

REPORT INFORMATION
  Report Type: 
  Country: None (occurrence: None)
  Receive Date: 20070313
  Receipt Date: 20070307
  Transmission Date: 20070707
  Serious: Yes (Hospitalization)
  Sender: FDA-Public Use
  Company Number: FR-ELI_LILLY_AND_COMPANY-FR200703001313

PATIENT
  Age: 83 Year
  Sex: Female

DRUGS (11)
  1. HUMALOG MIX 75/25 [Suspect]
     Route: 058
  2. LAROXYL [Concomitant]
     Dosage: 15 D/F, DAILY (1/D)
     Route: 048
  3. ISOPTIN [Concomitant]
     Dosage: 240 MG, DAILY (1/D)
     Route: 048
  4. LANSOPRAZOLE [Concomitant]
     Dosage: 30 MG, DAILY (1/D)
     Route: 048
  5. COVERSYL /FRA/ [Concomitant]
     Dosage: 2 MG, DAILY (1/D)
     Route: 048
  6. LASIX [Concomitant]
     Dosage: 40 MG, DAILY (1/D)
  7. PREVISCAN [Concomitant]
     Dosage: 0.75 D/F, UNK
  8. CORDARONE [Concomitant]
     Dosage: 1 D/F, DAILY (1/D)
  9. TAHOR [Concomitant]
     Dosage: 10 MG, DAILY (1/D)
  10. HYDROCORTISONE [Concomitant]
     Dosage: 15 MG, DAILY (1/D)
  11. SYMBICORT [Concomitant]

REACTIONS (4)
  - HAEMATEMESIS [None]
  - HYPOGLYCAEMIC COMA [None]
  - PNEUMONIA [None]
  - RESPIRATORY FAILURE [None]
